FAERS Safety Report 9113352 (Version 1)
Quarter: 2013Q1

REPORT INFORMATION
  Report Type: Spontaneous
  Country: US (occurrence: US)
  Receive Date: 20130131
  Receipt Date: 20130131
  Transmission Date: 20140127
  Serious: No
  Sender: FDA-Public Use
  Company Number: US-PFIZER INC-2013034183

PATIENT
  Age: 84 Year
  Sex: Female
  Weight: 57.6 kg

DRUGS (3)
  1. XELJANZ [Suspect]
     Indication: RHEUMATOID ARTHRITIS
     Dosage: 5 MG, DAILY
     Dates: start: 20130116, end: 20130119
  2. PREDNISONE [Concomitant]
     Indication: DIABETES MELLITUS
     Dosage: 5 MG, DAILY
  3. INSULIN [Concomitant]
     Indication: DIABETES MELLITUS
     Dosage: (18 UNITS IN MORNING AND 12 UNITS IN NIGHT) 2X/DAY

REACTIONS (3)
  - Diarrhoea [Recovered/Resolved]
  - Muscle spasms [Recovered/Resolved]
  - Pain [Recovered/Resolved]
